FAERS Safety Report 16506668 (Version 1)
Quarter: 2019Q3

REPORT INFORMATION
  Report Type: Spontaneous
  Country: US (occurrence: US)
  Receive Date: 20190701
  Receipt Date: 20190701
  Transmission Date: 20191004
  Serious: Yes (Other)
  Sender: FDA-Public Use
  Company Number: US-MAYNE PHARMA-2019MYN000345

PATIENT

DRUGS (7)
  1. DOFETILIDE. [Suspect]
     Active Substance: DOFETILIDE
     Dosage: 125 MCG, QD
     Route: 048
     Dates: start: 201904, end: 201904
  2. DOFETILIDE. [Suspect]
     Active Substance: DOFETILIDE
     Dosage: 125 MCG, BID
     Route: 048
     Dates: start: 201904, end: 201904
  3. DOFETILIDE. [Suspect]
     Active Substance: DOFETILIDE
     Dosage: 125 MCG, QOD
     Route: 048
     Dates: start: 201904, end: 201904
  4. DOFETILIDE. [Suspect]
     Active Substance: DOFETILIDE
     Indication: ATRIAL FIBRILLATION
     Dosage: 375 MCG, BID
     Route: 048
     Dates: start: 2018, end: 201904
  5. DOFETILIDE. [Suspect]
     Active Substance: DOFETILIDE
     Dosage: 250 MCG, BID
     Route: 048
     Dates: start: 201904, end: 201904
  6. MOTRIN [Concomitant]
     Active Substance: IBUPROFEN
     Indication: PRODUCT USED FOR UNKNOWN INDICATION
     Dosage: UNK, PRN
     Route: 048
  7. ASPIRIN                            /00002701/ [Concomitant]
     Active Substance: ASPIRIN
     Indication: PRODUCT USED FOR UNKNOWN INDICATION
     Dosage: UNK, PRN
     Route: 048

REACTIONS (5)
  - Panic attack [Recovered/Resolved]
  - Arrhythmia [Recovered/Resolved]
  - Heart rate irregular [Recovered/Resolved]
  - Ageusia [Recovered/Resolved]
  - Influenza like illness [Recovered/Resolved]

NARRATIVE: CASE EVENT DATE: 201812
